FAERS Safety Report 7011475-6 (Version None)
Quarter: 2010Q3

REPORT INFORMATION
  Report Type: 
  Country: None (occurrence: None)
  Receive Date: 20100923
  Receipt Date: 20081216
  Transmission Date: 20110219
  Serious: No
  Sender: FDA-Public Use
  Company Number: US-WYE-H07343008

PATIENT
  Sex: Female
  Weight: 102.15 kg

DRUGS (3)
  1. PREMARIN [Suspect]
     Indication: ATROPHY
     Dosage: USING ON AN INTERMITTENT BASES
     Route: 067
     Dates: start: 20081117, end: 20081130
  2. PREMARIN [Suspect]
     Route: 067
     Dates: start: 20081201, end: 20081212
  3. LEVOTHYROXINE SODIUM [Concomitant]

REACTIONS (3)
  - ABDOMINAL PAIN UPPER [None]
  - DYSPNOEA [None]
  - NAUSEA [None]
